FAERS Safety Report 15363275 (Version 5)
Quarter: 2019Q2

REPORT INFORMATION
  Report Type: Spontaneous
  Country: US (occurrence: US)
  Receive Date: 20180907
  Receipt Date: 20190612
  Transmission Date: 20190711
  Serious: Yes (Other)
  Sender: FDA-Public Use
  Company Number: US-PFIZER INC-2018362026

PATIENT
  Sex: Male

DRUGS (5)
  1. VIAGRA [Suspect]
     Active Substance: SILDENAFIL CITRATE
     Indication: SEXUAL DYSFUNCTION
  2. LYRICA [Concomitant]
     Active Substance: PREGABALIN
  3. VIAGRA [Suspect]
     Active Substance: SILDENAFIL CITRATE
     Indication: TESTICULAR FAILURE
     Dosage: 100 MG, UNK (ONE HOUR BEFORE INTENDED RELATIONS)
  4. VIAGRA [Suspect]
     Active Substance: SILDENAFIL CITRATE
     Indication: HYPOGONADISM
     Dosage: UNK (HALF OR ONE 100 MG TABLET ONCE EVERY OTHER 2 DAYS)
  5. SKELAXIN [CLONIXIN LYSINATE] [Concomitant]
     Active Substance: CLONIXIN LYSINE

REACTIONS (10)
  - Bone density decreased [Unknown]
  - Off label use [Unknown]
  - Product use in unapproved indication [Unknown]
  - Reading disorder [Unknown]
  - Micturition urgency [Unknown]
  - Fatigue [Unknown]
  - Stress [Unknown]
  - Tremor [Unknown]
  - Withdrawal syndrome [Unknown]
  - Parkinson^s disease [Unknown]
